FAERS Safety Report 21179117 (Version 4)
Quarter: 2022Q4

REPORT INFORMATION
  Report Type: Report from Study
  Country: CL (occurrence: CL)
  Receive Date: 20220805
  Receipt Date: 20221104
  Transmission Date: 20230113
  Serious: Yes (Death, Life-Threatening, Hospitalization, Other)
  Sender: FDA-Public Use
  Company Number: CL-BRISTOL-MYERS SQUIBB COMPANY-2022-080989

PATIENT
  Age: 71 Year
  Sex: Female
  Weight: 44 kg

DRUGS (9)
  1. NIVOLUMAB [Suspect]
     Active Substance: NIVOLUMAB
     Indication: Non-small cell lung cancer
     Dosage: MOST RECENT DOSE ON 30-JUN-2022
     Route: 042
     Dates: start: 20220407
  2. TIOTROPIUM BROMIDE [Concomitant]
     Active Substance: TIOTROPIUM BROMIDE
     Indication: Product used for unknown indication
     Dosage: 1 DF= 2 UNITS NOS
     Route: 048
     Dates: start: 202108
  3. ESOMEPRAZOLE MAGNESIUM [Concomitant]
     Active Substance: ESOMEPRAZOLE MAGNESIUM
     Indication: Product used for unknown indication
     Route: 048
     Dates: start: 2016
  4. METFORMIN [Concomitant]
     Active Substance: METFORMIN HYDROCHLORIDE
     Indication: Product used for unknown indication
     Route: 048
     Dates: start: 2012
  5. HYALURONIC ACID 0.1% [Concomitant]
     Indication: Dry mouth
     Dosage: 1 DF= 1UNIT NOS
     Route: 061
     Dates: start: 20220414
  6. UREA 10% [Concomitant]
     Indication: Pruritus
     Dosage: 1 DF= 2 UNITS NOS
     Route: 061
     Dates: start: 20220505
  7. FEXOFENADINE HYDROCHLORIDE [Concomitant]
     Active Substance: FEXOFENADINE HYDROCHLORIDE
     Indication: Pruritus
     Route: 048
     Dates: start: 20220505
  8. LEVOTHYROXINE SODIUM [Concomitant]
     Active Substance: LEVOTHYROXINE SODIUM
     Indication: Product used for unknown indication
     Route: 048
     Dates: start: 20220609
  9. XYLITOL [Concomitant]
     Active Substance: XYLITOL
     Indication: Stomatitis
     Dosage: 1 DF= 15 UNITS NOS
     Route: 061
     Dates: start: 20220616

REACTIONS (2)
  - Diarrhoea [Recovering/Resolving]
  - Pulmonary sepsis [Fatal]

NARRATIVE: CASE EVENT DATE: 20220725
